FAERS Safety Report 10268203 (Version 3)
Quarter: 2016Q4

REPORT INFORMATION
  Report Type: Report from Study
  Country: US (occurrence: US)
  Receive Date: 20140630
  Receipt Date: 20161227
  Transmission Date: 20170206
  Serious: Yes (Other)
  Sender: FDA-Public Use
  Company Number: US-ROCHE-1422090

PATIENT
  Age: 55 Year
  Sex: Male
  Weight: 63.4 kg

DRUGS (11)
  1. OXYCODONE [Concomitant]
     Active Substance: OXYCODONE
     Indication: BACK PAIN
     Route: 048
     Dates: end: 201309
  2. VEMURAFENIB [Suspect]
     Active Substance: VEMURAFENIB
     Indication: METASTATIC MALIGNANT MELANOMA
     Dosage: MOST RECENT DOSE PRIOR TO SAE: 15/OCT/2013
     Route: 048
     Dates: start: 20130912
  3. DOXYCYCLINE. [Concomitant]
     Active Substance: DOXYCYCLINE
     Indication: RASH
     Route: 048
     Dates: start: 20131010, end: 20131126
  4. PRILOSEC [Concomitant]
     Active Substance: OMEPRAZOLE MAGNESIUM
     Indication: DYSPEPSIA
     Route: 048
     Dates: end: 20140101
  5. COBIMETINIB [Suspect]
     Active Substance: COBIMETINIB
     Indication: METASTATIC MALIGNANT MELANOMA
     Dosage: MOST RECENT DOSE PRIOR TO SAE: 15/OCT/2013
     Route: 048
     Dates: start: 20130912
  6. COBIMETINIB [Suspect]
     Active Substance: COBIMETINIB
     Dosage: DOSE REDUCED
     Route: 048
  7. BENZOYL PEROXIDE. [Concomitant]
     Active Substance: BENZOYL PEROXIDE
     Dosage: DRUG REPORTED AS BENZYL PEROXIDE
     Route: 048
     Dates: start: 20131010, end: 20131010
  8. IMODIUM [Concomitant]
     Active Substance: LOPERAMIDE HYDROCHLORIDE
     Indication: DIARRHOEA
     Route: 048
     Dates: start: 20130926, end: 20131010
  9. TRIAMCINOLON [Concomitant]
     Indication: RASH
     Dosage: TRIAMCINALONE
     Route: 048
     Dates: start: 20130926, end: 20131010
  10. MORPHINE [Concomitant]
     Active Substance: MORPHINE
     Indication: BACK PAIN
     Route: 048
     Dates: end: 201309
  11. SENNOSIDES. [Concomitant]
     Active Substance: SENNOSIDES
     Dosage: INDICATION: STOOL SOFTENER
     Route: 048
     Dates: end: 201309

REACTIONS (1)
  - Retinal detachment [Recovered/Resolved]

NARRATIVE: CASE EVENT DATE: 20131016
